FAERS Safety Report 24714736 (Version 1)
Quarter: 2024Q4

REPORT INFORMATION
  Report Type: Spontaneous
  Country: MX (occurrence: MX)
  Receive Date: 20241210
  Receipt Date: 20241210
  Transmission Date: 20250115
  Serious: Yes (Hospitalization)
  Sender: NOVO NORDISK
  Company Number: MX-NOVOPROD-1328986

PATIENT
  Age: 34 Year
  Sex: Male
  Weight: 62 kg

DRUGS (2)
  1. NOVOEIGHT [Suspect]
     Active Substance: ANTIHEMOPHILIC FACTOR, HUMAN RECOMBINANT
     Indication: Prophylaxis
  2. NOVOEIGHT [Suspect]
     Active Substance: ANTIHEMOPHILIC FACTOR, HUMAN RECOMBINANT
     Indication: Factor VIII deficiency
     Dosage: DOSAGE: 3000 TO 4000 IU, EVERY OTHER DAY
     Route: 042
     Dates: start: 202405

REACTIONS (2)
  - Pneumonia [Recovering/Resolving]
  - Fluid retention [Unknown]
